FAERS Safety Report 7184653-3 (Version None)
Quarter: 2010Q4

REPORT INFORMATION
  Report Type: 
  Country: None (occurrence: None)
  Receive Date: 20101222
  Receipt Date: 20101215
  Transmission Date: 20110411
  Serious: Yes (Other)
  Sender: FDA-Public Use
  Company Number: PHHY2010CH86027

PATIENT
  Age: 54 Year
  Weight: 82 kg

DRUGS (8)
  1. CARBOPLATIN [Suspect]
     Indication: SQUAMOUS CELL CARCINOMA
     Dosage: 670 MG CYCLIC
     Route: 042
     Dates: start: 20100512
  2. CARBOPLATIN [Suspect]
     Dosage: 670 MG CYCLIC
     Route: 042
     Dates: start: 20100519
  3. CARBOPLATIN [Suspect]
     Dosage: 670 MG CYCLIC
     Route: 042
     Dates: start: 20100602
  4. PACLITAXEL [Suspect]
     Indication: SQUAMOUS CELL CARCINOMA
     Dosage: 160 MG CYCLIC
     Route: 042
     Dates: start: 20100512
  5. TAVEGYL [Concomitant]
  6. NAVOBAN [Concomitant]
  7. DEXAMETHASONE [Concomitant]
  8. ZANTIC [Concomitant]

REACTIONS (1)
  - PRIAPISM [None]
